FAERS Safety Report 5372989-8 (Version None)
Quarter: 2007Q2

REPORT INFORMATION
  Report Type: 
  Country: None (occurrence: None)
  Receive Date: 20070619
  Receipt Date: 20070226
  Transmission Date: 20071010
  Serious: No
  Sender: FDA-Public Use
  Company Number: 2007US000605

PATIENT
  Sex: Female

DRUGS (1)
  1. VESICARE [Suspect]
     Indication: DRUG USE FOR UNKNOWN INDICATION
     Dosage: 5 MG, TOTAL DOSE
     Dates: start: 20070219

REACTIONS (2)
  - DISTURBANCE IN ATTENTION [None]
  - SOMNOLENCE [None]
